FAERS Safety Report 10080391 (Version 2)
Quarter: 2014Q2

REPORT INFORMATION
  Report Type: Report from Study
  Country: IN (occurrence: IN)
  Receive Date: 20140416
  Receipt Date: 20140428
  Transmission Date: 20141212
  Serious: Yes (Other)
  Sender: FDA-Public Use
  Company Number: IN-ROCHE-1379232

PATIENT
  Age: 58 Year
  Sex: Male

DRUGS (8)
  1. ACTEMRA [Suspect]
     Indication: RHEUMATOID ARTHRITIS
     Route: 042
     Dates: start: 20130709
  2. ACTEMRA [Suspect]
     Route: 042
     Dates: start: 20130709
  3. FOLITRAX [Concomitant]
     Route: 048
     Dates: start: 20130720
  4. FOLVITE [Concomitant]
     Route: 048
     Dates: start: 20130720
  5. ATORVA [Concomitant]
     Route: 048
     Dates: start: 20130720
  6. OMNACORTIL [Concomitant]
     Route: 048
     Dates: start: 20130720
  7. SHELCAL [Concomitant]
     Route: 048
     Dates: start: 20130720
  8. NAPROSYN [Concomitant]
     Route: 048
     Dates: start: 20130720

REACTIONS (1)
  - Joint injury [Not Recovered/Not Resolved]
